FAERS Safety Report 19693333 (Version 7)
Quarter: 2022Q1

REPORT INFORMATION
  Report Type: Spontaneous
  Country: US (occurrence: US)
  Receive Date: 20210812
  Receipt Date: 20220327
  Transmission Date: 20220424
  Serious: Yes (Hospitalization, Other)
  Sender: FDA-Public Use
  Company Number: US-SA-SAC20210514000692

PATIENT
  Age: 13 Year
  Sex: Male

DRUGS (3)
  1. CEREZYME [Suspect]
     Active Substance: IMIGLUCERASE
     Indication: Gaucher^s disease
     Dosage: 4800 IU, QW
     Route: 042
     Dates: start: 20100313
  2. CEREZYME [Suspect]
     Active Substance: IMIGLUCERASE
     Dosage: 4800 U, QW
     Route: 042
     Dates: start: 20100414
  3. CEREZYME [Suspect]
     Active Substance: IMIGLUCERASE
     Dosage: 4800 U, QW
     Route: 042
     Dates: start: 20140312

REACTIONS (7)
  - Seizure [Unknown]
  - Hospitalisation [Unknown]
  - Vision blurred [Unknown]
  - Gait disturbance [Unknown]
  - Affective disorder [Unknown]
  - Inappropriate schedule of product administration [Unknown]
  - Product dose omission issue [Unknown]

NARRATIVE: CASE EVENT DATE: 20100313
